FAERS Safety Report 5011505-7 (Version None)
Quarter: 2006Q2

REPORT INFORMATION
  Report Type: 
  Country: None (occurrence: None)
  Receive Date: 20060524
  Receipt Date: 20060511
  Transmission Date: 20061013
  Serious: Yes (Hospitalization)
  Sender: FDA-Public Use
  Company Number: 200610630BVD

PATIENT
  Age: 60 Year
  Sex: Male
  Weight: 75 kg

DRUGS (3)
  1. VARDENAFIL          (UNCODEABLE ^INVESTIGATIONAL DRUG^) [Suspect]
     Indication: ERECTILE DYSFUNCTION
     Dosage: 10 MG, QD, ORAL
     Route: 048
     Dates: start: 20060309
  2. PLACEBO TO VARDENAFIL (PLACEBO) [Suspect]
     Indication: ERECTILE DYSFUNCTION
     Dosage: QD
  3. PLACEBO TO VARDENAFIL (PLACEBO) [Suspect]
     Indication: ERECTILE DYSFUNCTION
     Dosage: PRN

REACTIONS (1)
  - CEREBROVASCULAR ACCIDENT [None]
